FAERS Safety Report 26059265 (Version 1)
Quarter: 2025Q4

REPORT INFORMATION
  Report Type: Spontaneous
  Country: US (occurrence: None)
  Receive Date: 20251117
  Receipt Date: 20251117
  Transmission Date: 20260117
  Serious: Yes (Other)
  Sender: FDA-CTU
  Company Number: None

PATIENT
  Age: 78 Year
  Sex: Male
  Weight: 117.93 kg

DRUGS (20)
  1. OHTUVAYRE (ENSIFENTRINE) INHALATION SUSPENSION [Suspect]
     Active Substance: ENSIFENTRINE
     Indication: Chronic obstructive pulmonary disease
     Dosage: 1 PA ... IN NEBULIZER TWICE DAILY BY INHALATION I NEBULIZER
     Route: 055
     Dates: start: 20251023, end: 20251023
  2. Trilogy Ellipta [Concomitant]
  3. OMEPRAZOLE [Concomitant]
     Active Substance: OMEPRAZOLE
  4. ELIQUIS [Concomitant]
     Active Substance: APIXABAN
  5. FUROSEMIDE [Concomitant]
     Active Substance: FUROSEMIDE
  6. CARVEDILOL [Concomitant]
     Active Substance: CARVEDILOL
  7. ENTRESTO [Concomitant]
     Active Substance: SACUBITRIL\VALSARTAN
  8. Klor-con M20 Potassium [Concomitant]
  9. FINASTERIDE [Concomitant]
     Active Substance: FINASTERIDE
  10. AMIODARONE [Concomitant]
     Active Substance: AMIODARONE
  11. SILDENAFIL [Concomitant]
     Active Substance: SILDENAFIL
  12. CLOPIDOGREL [Concomitant]
     Active Substance: CLOPIDOGREL BISULFATE
  13. Mag-ox 400 [Concomitant]
  14. ROSUVASTATIN CALCIUM [Concomitant]
     Active Substance: ROSUVASTATIN CALCIUM
  15. KETOCONAZOLE [Concomitant]
     Active Substance: KETOCONAZOLE
  16. Pro-air rescue Inhaler [Concomitant]
  17. VITAMIN D3 [Concomitant]
     Active Substance: CHOLECALCIFEROL
  18. VITAMINS [Concomitant]
     Active Substance: VITAMINS
  19. PRE/PROBIOTIC [Concomitant]
  20. FISH OIL [Concomitant]
     Active Substance: FISH OIL

REACTIONS (4)
  - Dyspnoea [None]
  - Chest discomfort [None]
  - Feeling abnormal [None]
  - Oxygen saturation decreased [None]

NARRATIVE: CASE EVENT DATE: 20251023
